FAERS Safety Report 24534053 (Version 1)
Quarter: 2024Q4

REPORT INFORMATION
  Report Type: Spontaneous
  Country: US (occurrence: US)
  Receive Date: 20241022
  Receipt Date: 20241022
  Transmission Date: 20250114
  Serious: No
  Sender: ROCHE
  Company Number: US-ROCHE-10000111233

PATIENT
  Sex: Male

DRUGS (7)
  1. ACTEMRA [Suspect]
     Active Substance: TOCILIZUMAB
     Indication: Product used for unknown indication
     Route: 065
  2. XELJANZ XR [Suspect]
     Active Substance: TOFACITINIB CITRATE
     Indication: Product used for unknown indication
     Dosage: XELJANZ XR 11MG TABLETS/RHEUMATOID ARTHRITIS
     Route: 048
     Dates: start: 202410
  3. LEFLUNOMIDE 10MG TABLETS [Concomitant]
  4. PREDNISONE 2.5MG TABLETS [Concomitant]
  5. ALENDRONATE [Concomitant]
     Active Substance: ALENDRONATE SODIUM
  6. FOLIC ACID [Concomitant]
     Active Substance: FOLIC ACID
  7. METHOTREXATE 2.5MG TABLETS-YELLOW [Concomitant]

REACTIONS (5)
  - Arthritis [Unknown]
  - Fatigue [Unknown]
  - Ill-defined disorder [Unknown]
  - Loss of personal independence in daily activities [Unknown]
  - Pain [Unknown]
